FAERS Safety Report 11174517 (Version 1)
Quarter: 2015Q2

REPORT INFORMATION
  Report Type: Spontaneous
  Country: FR (occurrence: FR)
  Receive Date: 20150609
  Receipt Date: 20150609
  Transmission Date: 20150821
  Serious: Yes (Life-Threatening, Hospitalization)
  Sender: FDA-Public Use
  Company Number: FR-SA-2015SA079869

PATIENT
  Age: 56 Year
  Sex: Male

DRUGS (6)
  1. ALDACTONE [Interacting]
     Active Substance: SPIRONOLACTONE
     Route: 048
     Dates: end: 20150515
  2. KARDEGIC [Concomitant]
     Active Substance: ASPIRIN LYSINE
  3. PREVISCAN [Concomitant]
     Active Substance: FLUINDIONE
  4. HEMIGOXINE NATIVELLE [Concomitant]
     Active Substance: DIGOXIN
  5. TRIATEC [Interacting]
     Active Substance: RAMIPRIL
     Route: 048
     Dates: end: 20150515
  6. FUROSEMIDE. [Suspect]
     Active Substance: FUROSEMIDE
     Route: 048
     Dates: end: 20150515

REACTIONS (3)
  - Renal failure [Recovering/Resolving]
  - Hyperkalaemia [Recovered/Resolved]
  - Drug interaction [Recovering/Resolving]

NARRATIVE: CASE EVENT DATE: 20150515
